FAERS Safety Report 8396736 (Version 2)
Quarter: 2013Q3

REPORT INFORMATION
  Report Type: Report from Study
  Country: MX (occurrence: MX)
  Receive Date: 20120208
  Receipt Date: 20130710
  Transmission Date: 20140515
  Serious: Yes (Other)
  Sender: FDA-Public Use
  Company Number: PHHY2012MX009233

PATIENT
  Age: 71 Year
  Sex: Male

DRUGS (4)
  1. VOLTAREN RETARD [Suspect]
     Indication: PAIN
     Dosage: 1 DF (100 MG), DAILY
     Route: 048
     Dates: start: 198001
  2. BI-EUGLUCON [Concomitant]
     Indication: DIABETES MELLITUS
     Dosage: 1 DF, UNK
     Route: 048
     Dates: start: 199701
  3. ENALAPRIL [Concomitant]
     Indication: HYPERTENSION
     Dosage: 2 DF, UNK
     Route: 048
     Dates: start: 199701
  4. METOPROLOL [Concomitant]
     Indication: HYPERTENSION
     Dosage: 1 DF, UNK
     Route: 048
     Dates: start: 199701

REACTIONS (2)
  - Arthritis [Unknown]
  - Coronary artery occlusion [Recovered/Resolved]
